FAERS Safety Report 18748219 (Version 5)
Quarter: 2024Q1

REPORT INFORMATION
  Report Type: Other
  Country: US (occurrence: None)
  Receive Date: 20210116
  Receipt Date: 20240220
  Transmission Date: 20240410
  Serious: Yes (Other)
  Sender: FDA-Public Use
  Company Number: US-ROCHE-2746157

PATIENT
  Age: 74 Year
  Sex: Female

DRUGS (4)
  1. ESBRIET [Suspect]
     Active Substance: PIRFENIDONE
     Indication: Idiopathic pulmonary fibrosis
     Dosage: TAKE 1 TABLET BY MOUTH THREE TIMES DAILY EVERY DAY
     Route: 048
  2. ESBRIET [Suspect]
     Active Substance: PIRFENIDONE
     Indication: Osteoporosis
  3. ESBRIET [Suspect]
     Active Substance: PIRFENIDONE
     Indication: Senile osteoporosis
  4. ESBRIET [Suspect]
     Active Substance: PIRFENIDONE
     Indication: Pathological fracture

REACTIONS (3)
  - Bronchitis [Unknown]
  - Incorrect dose administered [Unknown]
  - Product prescribing error [Unknown]
